FAERS Safety Report 8842924 (Version 1)
Quarter: 2012Q4

REPORT INFORMATION
  Report Type: 
  Country: NL (occurrence: NL)
  Receive Date: 20121016
  Receipt Date: 20121016
  Transmission Date: 20130627
  Serious: Yes (Hospitalization)
  Sender: FDA-Public Use
  Company Number: NL-ELI_LILLY_AND_COMPANY-EWC990202809

PATIENT
  Sex: Male

DRUGS (2)
  1. ZYPREXA [Suspect]
     Dosage: 30 mg, daily (1/D)
     Route: 048
     Dates: start: 199701
  2. TEMESTA [Concomitant]
     Dosage: 5 mg, qd

REACTIONS (2)
  - Drug level increased [Recovered/Resolved]
  - Overdose [Unknown]
